FAERS Safety Report 9708436 (Version 4)
Quarter: 2014Q1

REPORT INFORMATION
  Report Type: Spontaneous
  Country: JP (occurrence: JP)
  Receive Date: 20131125
  Receipt Date: 20140303
  Transmission Date: 20141002
  Serious: Yes (Hospitalization, Disabling, Other)
  Sender: FDA-Public Use
  Company Number: JP-PFIZER INC-2013334719

PATIENT
  Age: 77 Year
  Sex: Male
  Weight: 60 kg

DRUGS (20)
  1. LYRICA [Suspect]
     Indication: BACK PAIN
     Dosage: 75 MG, 2X/DAY
     Route: 048
     Dates: start: 20120726, end: 20131118
  2. NORVASC [Concomitant]
     Indication: HYPERTENSION
     Dosage: 5 MG, 1X/DAY
     Route: 048
  3. TAKEPRON [Concomitant]
     Indication: ABDOMINAL PAIN UPPER
     Dosage: ONCE A DAY
     Route: 048
  4. PLAVIX [Concomitant]
  5. OPALMON [Concomitant]
     Indication: BACK PAIN
     Dosage: TWICE A DAY AS NEEDED
     Route: 048
  6. OPALMON [Concomitant]
     Indication: NEURALGIA
  7. CELECOX [Concomitant]
  8. ARTIST [Concomitant]
     Indication: TACHYCARDIA
     Dosage: 2.5 MG, 2X/DAY
     Route: 048
  9. ASPIRIN [Concomitant]
     Indication: THROMBOSIS PROPHYLAXIS
     Dosage: 100 MG, 1X/DAY
     Route: 048
  10. KINEDAK [Concomitant]
     Indication: BACK PAIN
     Dosage: ONCE A DAY AS NEEDED
  11. KINEDAK [Concomitant]
     Indication: NEURALGIA
  12. PREMINENT [Concomitant]
     Indication: HYPERTENSION
     Dosage: ONCE A DAY
     Route: 048
  13. CRESTOR [Concomitant]
     Indication: HYPERLIPIDAEMIA
     Dosage: 2.5 MG, DAILY
     Route: 048
  14. YODEL [Concomitant]
     Indication: CONSTIPATION
     Dosage: ONCE A DAY
     Route: 048
  15. LENDORMIN [Concomitant]
     Indication: INSOMNIA
     Dosage: 0.25 MG, 1X/DAY
  16. DEPAS [Concomitant]
     Indication: INSOMNIA
     Dosage: 0.5 MG, 1X/DAY
  17. NOVORAPID [Concomitant]
     Indication: DIABETES MELLITUS
     Dosage: 1.0 - 6 U TWICE A DAY
  18. VOLTAREN - SLOW RELEASE ^NOVARTIS^ [Concomitant]
     Dosage: TWICE A DAY
  19. HACHIMIJIO-GAN [Concomitant]
     Dosage: TWICE A DAY
  20. SHAKUYAKU-KANZO-TO [Concomitant]
     Dosage: TWICE A DAY

REACTIONS (2)
  - Interstitial lung disease [Not Recovered/Not Resolved]
  - Drug ineffective [Unknown]
